FAERS Safety Report 14744604 (Version 2)
Quarter: 2018Q2

REPORT INFORMATION
  Report Type: Spontaneous
  Country: IT (occurrence: IT)
  Receive Date: 20180411
  Receipt Date: 20180420
  Transmission Date: 20180711
  Serious: Yes (Hospitalization)
  Sender: FDA-Public Use
  Company Number: IT-CIPLA LTD.-2018IT14522

PATIENT

DRUGS (1)
  1. LEVOFLOXACIN. [Suspect]
     Active Substance: LEVOFLOXACIN
     Indication: EAR INFECTION
     Dosage: UNK
     Route: 048
     Dates: start: 20180126, end: 20180126

REACTIONS (2)
  - Hypertension [Unknown]
  - Lip oedema [Unknown]

NARRATIVE: CASE EVENT DATE: 20180127
